FAERS Safety Report 13934248 (Version 1)
Quarter: 2017Q3

REPORT INFORMATION
  Report Type: Spontaneous
  Country: US (occurrence: US)
  Receive Date: 20170905
  Receipt Date: 20170905
  Transmission Date: 20171127
  Serious: Yes (Hospitalization, Other)
  Sender: FDA-Public Use
  Company Number: US-009507513-1708USA011429

PATIENT
  Age: 68 Year
  Sex: Male

DRUGS (2)
  1. TICE BCG [Suspect]
     Active Substance: BACILLUS CALMETTE-GUERIN SUBSTRAIN TICE LIVE ANTIGEN
     Indication: BLADDER TRANSITIONAL CELL CARCINOMA
     Dosage: RECEIVED 6 CYCLES OF INTRAVESICAL BCG
     Route: 043
     Dates: start: 201504, end: 201504
  2. TICE BCG [Suspect]
     Active Substance: BACILLUS CALMETTE-GUERIN SUBSTRAIN TICE LIVE ANTIGEN
     Dosage: SECOND COURSE OF THERAPY
     Route: 043
     Dates: start: 20150807

REACTIONS (4)
  - Alveolitis allergic [Recovered/Resolved]
  - Septic shock [Recovered/Resolved]
  - Acute kidney injury [Unknown]
  - Transaminases increased [Unknown]

NARRATIVE: CASE EVENT DATE: 201508
